FAERS Safety Report 6259071-2 (Version None)
Quarter: 2009Q3

REPORT INFORMATION
  Report Type: 
  Country: None (occurrence: None)
  Receive Date: 20090707
  Receipt Date: 20090702
  Transmission Date: 20100115
  Serious: Yes (Death)
  Sender: FDA-Public Use
  Company Number: PHEH2009US06807

PATIENT
  Sex: Male

DRUGS (2)
  1. TASIGNA [Suspect]
     Indication: CHRONIC LYMPHOCYTIC LEUKAEMIA
     Dosage: 400 MG, UNK
     Dates: start: 20080501, end: 20080901
  2. TASIGNA [Suspect]
     Indication: MYELOFIBROSIS
     Dosage: 200 MG, UNK
     Dates: start: 20080901

REACTIONS (10)
  - ABDOMINAL WOUND DEHISCENCE [None]
  - CHRONIC LYMPHOCYTIC LEUKAEMIA TRANSFORMATION [None]
  - CLOSTRIDIAL INFECTION [None]
  - GASTROINTESTINAL SURGERY [None]
  - INTESTINAL OBSTRUCTION [None]
  - MYOCARDIAL INFARCTION [None]
  - PNEUMONIA [None]
  - POST PROCEDURAL COMPLICATION [None]
  - SEPSIS [None]
  - TREATMENT NONCOMPLIANCE [None]
